FAERS Safety Report 6402238-0 (Version None)
Quarter: 2009Q4

REPORT INFORMATION
  Report Type: 
  Country: None (occurrence: None)
  Receive Date: 20091013
  Receipt Date: 20090930
  Transmission Date: 20100525
  Serious: Yes (Hospitalization)
  Sender: FDA-Public Use
  Company Number: 001918

PATIENT
  Sex: Female
  Weight: 45.4 kg

DRUGS (3)
  1. LACOSAMIDE [Suspect]
     Indication: CONVULSION
     Dosage: (200 MG BID ORAL)
     Route: 048
     Dates: start: 20090716, end: 20090824
  2. LAMICTAL [Concomitant]
  3. KTONOPIN [Concomitant]

REACTIONS (7)
  - AGGRESSION [None]
  - ANGER [None]
  - CONVULSION [None]
  - DEPRESSION [None]
  - DYSGEUSIA [None]
  - FEAR [None]
  - WEIGHT DECREASED [None]
